FAERS Safety Report 21021393 (Version 1)
Quarter: 2022Q2

REPORT INFORMATION
  Report Type: Report from Study
  Country: GB (occurrence: GR)
  Receive Date: 20220629
  Receipt Date: 20220629
  Transmission Date: 20220721
  Serious: Yes (Other)
  Sender: FDA-Public Use
  Company Number: GB-SUN PHARMACEUTICAL INDUSTRIES LTD-2022R1-342371

PATIENT
  Age: 76 Year

DRUGS (5)
  1. HALOPERIDOL [Suspect]
     Active Substance: HALOPERIDOL
     Indication: Antipsychotic therapy
     Dosage: 20 MILLIGRAM, DAILY
     Route: 065
  2. PRAMIPEXOLE [Suspect]
     Active Substance: PRAMIPEXOLE
     Indication: Antipsychotic therapy
     Dosage: 0.18 MILLIGRAM, DAILY
     Route: 065
  3. QUINAPRIL [Suspect]
     Active Substance: QUINAPRIL
     Indication: Antipsychotic therapy
     Dosage: 20 MILLIGRAM, DAILY
     Route: 065
  4. RABEPRAZOLE [Suspect]
     Active Substance: RABEPRAZOLE
     Indication: Antipsychotic therapy
     Dosage: 10 MILLIGRAM, DAILY
     Route: 065
  5. VENLAFAXINE [Suspect]
     Active Substance: VENLAFAXINE HYDROCHLORIDE
     Indication: Antipsychotic therapy
     Dosage: 150 MILLIGRAM, DAILY
     Route: 065

REACTIONS (1)
  - Parkinson^s disease [Unknown]
